FAERS Safety Report 8509051-9 (Version None)
Quarter: 2012Q3

REPORT INFORMATION
  Report Type: 
  Country: None (occurrence: None)
  Receive Date: 20120713
  Receipt Date: 20120628
  Transmission Date: 20120928
  Serious: Yes (Hospitalization)
  Sender: FDA-Public Use
  Company Number: BR-009507513-1207BRA002803

PATIENT

DRUGS (3)
  1. BETAMETHASONE (+) LORATADINE [Suspect]
     Dosage: 0.25G/5MG, 2 TABLETS, ONCE
     Route: 048
     Dates: start: 20120511, end: 20120511
  2. CLARITIN [Suspect]
     Indication: PRODUCT USED FOR UNKNOWN INDICATION
     Dosage: 10 MG, ONCE
     Dates: start: 20120525, end: 20120525
  3. CELESTONE [Concomitant]
     Indication: PRODUCT USED FOR UNKNOWN INDICATION
     Dosage: 0.5 MG, ONCE
     Route: 048
     Dates: start: 20120525, end: 20120525

REACTIONS (1)
  - GASTRIC ULCER [None]
